FAERS Safety Report 6323669-3 (Version None)
Quarter: 2009Q3

REPORT INFORMATION
  Report Type: 
  Country: None (occurrence: None)
  Receive Date: 20090824
  Receipt Date: 20090327
  Transmission Date: 20100115
  Serious: No
  Sender: FDA-Public Use
  Company Number: US-ABBOTT-09P-163-0565337-00

PATIENT
  Sex: Male
  Weight: 112.59 kg

DRUGS (4)
  1. NIASPAN [Suspect]
     Indication: HIGH DENSITY LIPOPROTEIN DECREASED
     Dates: start: 20080801
  2. NIASPAN [Suspect]
     Dates: start: 20080101
  3. NIASPAN [Suspect]
     Dates: start: 20090101, end: 20090301
  4. NIASPAN [Suspect]
     Dates: start: 20090301

REACTIONS (1)
  - FLUSHING [None]
